FAERS Safety Report 4279890-1 (Version None)
Quarter: 2004Q1

REPORT INFORMATION
  Report Type: 
  Country: None (occurrence: None)
  Receive Date: 20040122
  Receipt Date: 20040108
  Transmission Date: 20041129
  Serious: No
  Sender: FDA-Public Use
  Company Number: FABR-10429

PATIENT
  Age: 39 Year
  Sex: Male
  Weight: 51 kg

DRUGS (7)
  1. FABRAZYME [Suspect]
     Indication: FABRY'S DISEASE
     Dosage: 1 MG/KG Q2WKS IV
     Route: 042
     Dates: start: 20010812
  2. DIPYRIDAMOLE [Concomitant]
  3. CARBAMAZEPINE [Concomitant]
  4. ALLOPURINOL [Concomitant]
  5. LOSARTAN POTASSIUM [Concomitant]
  6. CALCIUM CARBONATE [Concomitant]
  7. SPHERICAL CARBONACEOUS ABSORBENT [Concomitant]

REACTIONS (3)
  - CONDITION AGGRAVATED [None]
  - DIALYSIS DEVICE INSERTION [None]
  - HEPATIC FUNCTION ABNORMAL [None]
